FAERS Safety Report 11522364 (Version 1)
Quarter: 2015Q3

REPORT INFORMATION
  Report Type: Spontaneous
  Country: US (occurrence: US)
  Receive Date: 20150918
  Receipt Date: 20150918
  Transmission Date: 20151125
  Serious: No
  Sender: FDA-Public Use
  Company Number: US-ROCHE-751769

PATIENT
  Age: 62 Year
  Sex: Female

DRUGS (2)
  1. PEGASYS [Suspect]
     Active Substance: PEGINTERFERON ALFA-2A
     Indication: HEPATITIS C
     Dosage: FORM:PFS
     Route: 058
  2. RIBAVIRIN. [Suspect]
     Active Substance: RIBAVIRIN
     Indication: HEPATITIS C
     Dosage: DIVIDED DOSES
     Route: 048

REACTIONS (6)
  - Fatigue [Unknown]
  - Depression [Not Recovered/Not Resolved]
  - Rhinorrhoea [Not Recovered/Not Resolved]
  - Nausea [Unknown]
  - Vertigo [Unknown]
  - Red blood cell count decreased [Unknown]

NARRATIVE: CASE EVENT DATE: 20101021
